FAERS Safety Report 9219675 (Version 1)
Quarter: 2013Q1

REPORT INFORMATION
  Report Type: Spontaneous
  Country: US (occurrence: None)
  Receive Date: 20120830
  Receipt Date: 20120830
  Transmission Date: 20140127
  Serious: Yes (Other)
  Sender: FDA-Public Use
  Company Number: PHEH2012US009889

PATIENT
  Sex: Female

DRUGS (1)
  1. EXFORGE (VALSARTAN, AMLODIPINE) UNKNOWN [Suspect]
     Dosage: 1 DF (320/10MG)

REACTIONS (1)
  - Hypertension [None]
